FAERS Safety Report 12349007 (Version 5)
Quarter: 2016Q3

REPORT INFORMATION
  Report Type: Spontaneous
  Country: GB (occurrence: GB)
  Receive Date: 20160509
  Receipt Date: 20160706
  Transmission Date: 20161109
  Serious: Yes (Death, Life-Threatening, Other)
  Sender: FDA-Public Use
  Company Number: GB-PFIZER INC-2016243433

PATIENT
  Age: 5 Decade
  Sex: Female

DRUGS (1)
  1. PREGABALIN. [Suspect]
     Active Substance: PREGABALIN
     Indication: PAIN
     Dosage: 300 MG, 2X/DAY

REACTIONS (4)
  - Death [Fatal]
  - Drug dependence [Unknown]
  - Cardiac arrest [Unknown]
  - Substance use [Unknown]
